FAERS Safety Report 8621330 (Version 4)
Quarter: 2013Q2

REPORT INFORMATION
  Report Type: Spontaneous
  Country: US (occurrence: US)
  Receive Date: 20120619
  Receipt Date: 20130501
  Transmission Date: 20140414
  Serious: Yes (Death)
  Sender: FDA-Public Use
  Company Number: US-B.I. PHARMACEUTICALS,INC./RIDGEFIELD-2012-BP-13794BP

PATIENT
  Age: 77 Year
  Sex: Female
  Weight: 120.2 kg

DRUGS (4)
  1. PRADAXA [Suspect]
     Indication: ATRIAL FIBRILLATION
     Dosage: 300 MG
     Route: 048
     Dates: start: 201105, end: 201109
  2. ZOCOR [Concomitant]
     Dosage: 10 MG
     Route: 048
  3. TRIAZAC [Concomitant]
     Dosage: 480 MG
     Route: 048
  4. TEKTURNA [Concomitant]
     Dosage: 300 MG
     Route: 048

REACTIONS (2)
  - Haemorrhage intracranial [Fatal]
  - Lower gastrointestinal haemorrhage [Unknown]
